FAERS Safety Report 7147934 (Version 2)
Quarter: 2014Q2

REPORT INFORMATION
  Report Type: Spontaneous
  Country: PL (occurrence: None)
  Receive Date: 20090928
  Receipt Date: 20140415
  Transmission Date: 20141212
  Serious: Yes (Hospitalization, Other)
  Sender: FDA-Public Use
  Company Number: AUR-APL-2009-00637

PATIENT
  Age: 18 Year
  Sex: Male

DRUGS (6)
  1. METOPROLOL [Suspect]
     Indication: HYPERTENSION
     Dosage: 200 MG, DAILY, UNK
  2. LISINOPRIL [Suspect]
     Indication: HYPERTENSION
     Dosage: 10MG, DAILY, UNK
  3. NITRENDIPINE [Suspect]
     Indication: HYPERTENSION
     Dosage: 20-40MG - DAILY - UNK
  4. PERINDOPRIL [Suspect]
     Indication: HYPERTENSION
     Dosage: 4MG - DAILY - UNK
  5. PRAZOSIN [Suspect]
     Indication: HYPERTENSION
     Dosage: 6-15MG - DAILY - UNK
  6. FUROSEMIDE [Suspect]
     Indication: HYPERTENSION
     Dosage: 40MG - DAILY - UNK

REACTIONS (11)
  - Blood pressure inadequately controlled [None]
  - Left ventricular hypertrophy [None]
  - Hypertensive nephropathy [None]
  - Blood cholesterol increased [None]
  - Blood triglycerides increased [None]
  - Blood uric acid increased [None]
  - Renal artery stenosis [None]
  - Renal failure acute [None]
  - Haemodialysis [None]
  - Renal aneurysm [None]
  - Retinopathy hypertensive [None]
